FAERS Safety Report 9483435 (Version 1)
Quarter: 2013Q3

REPORT INFORMATION
  Report Type: Spontaneous
  Country: US (occurrence: US)
  Receive Date: 20130828
  Receipt Date: 20130828
  Transmission Date: 20140515
  Serious: Yes (Hospitalization)
  Sender: FDA-Public Use
  Company Number: US-AMGEN-KDL267565

PATIENT
  Age: 71 Year
  Sex: Female

DRUGS (3)
  1. PROCRIT [Suspect]
     Indication: ANAEMIA
     Dosage: 10000 IU, QWK
     Route: 058
  2. LANSOPRAZOLE [Concomitant]
  3. FUROSEMIDE [Concomitant]

REACTIONS (1)
  - Hospitalisation [Not Recovered/Not Resolved]
